FAERS Safety Report 4471101-7 (Version None)
Quarter: 2004Q4

REPORT INFORMATION
  Report Type: 
  Country: None (occurrence: None)
  Receive Date: 20041011
  Receipt Date: 20040930
  Transmission Date: 20050328
  Serious: Yes (Other)
  Sender: FDA-Public Use
  Company Number: PHBS2004IL13052

PATIENT
  Age: 58 Year
  Sex: Female

DRUGS (3)
  1. PAMIDRONATE DISODIUM [Suspect]
     Indication: MULTIPLE MYELOMA
     Dosage: UNK, QMO
     Dates: start: 19910101
  2. MELPHALAN [Concomitant]
  3. PREDNISONE [Concomitant]

REACTIONS (9)
  - ACTINOMYCOTIC SKIN INFECTION [None]
  - ALVEOLOPLASTY [None]
  - FACIAL PAIN [None]
  - MOUTH ULCERATION [None]
  - OSTEOMYELITIS [None]
  - OSTEONECROSIS [None]
  - PAIN IN JAW [None]
  - PURULENT DISCHARGE [None]
  - SEQUESTRECTOMY [None]
